FAERS Safety Report 9744832 (Version 1)
Quarter: 2013Q4

REPORT INFORMATION
  Report Type: Report from Study
  Country: US (occurrence: US)
  Receive Date: 20131211
  Receipt Date: 20131211
  Transmission Date: 20140711
  Serious: Yes (Other)
  Sender: FDA-Public Use
  Company Number: US-ROCHE-1315350

PATIENT
  Age: 55 Year
  Sex: Female

DRUGS (2)
  1. TOCILIZUMAB [Suspect]
     Indication: RHEUMATOID ARTHRITIS
     Dosage: HALF DOSE
     Route: 042
     Dates: start: 20131104
  2. TOCILIZUMAB [Suspect]
     Route: 042
     Dates: start: 20131126

REACTIONS (7)
  - Stomatitis [Not Recovered/Not Resolved]
  - Sinusitis [Not Recovered/Not Resolved]
  - Nausea [Unknown]
  - Hyperhidrosis [Unknown]
  - Migraine [Unknown]
  - Headache [Unknown]
  - Swollen tongue [Unknown]
